FAERS Safety Report 9442421 (Version 1)
Quarter: 2013Q3

REPORT INFORMATION
  Report Type: Spontaneous
  Country: US (occurrence: US)
  Receive Date: 20130806
  Receipt Date: 20130806
  Transmission Date: 20140515
  Serious: No
  Sender: FDA-Public Use
  Company Number: US-GLAXOSMITHKLINE-A1024552A

PATIENT
  Age: 80 Year
  Sex: Female

DRUGS (7)
  1. ADVAIR [Suspect]
     Indication: ASTHMA
     Dosage: 1PUFF PER DAY
     Route: 055
     Dates: start: 201211
  2. ADVAIR [Suspect]
     Indication: ASTHMA
     Route: 055
     Dates: start: 2012
  3. VENTOLIN HFA [Concomitant]
  4. NAPROSYN [Concomitant]
  5. ZOCOR [Concomitant]
  6. CLARITIN [Concomitant]
  7. MALIC ACID [Concomitant]

REACTIONS (3)
  - Feeling jittery [Unknown]
  - Anxiety [Unknown]
  - Suffocation feeling [Unknown]
